FAERS Safety Report 7588629-3 (Version None)
Quarter: 2011Q3

REPORT INFORMATION
  Report Type: 
  Country: None (occurrence: None)
  Receive Date: 20110705
  Receipt Date: 20110411
  Transmission Date: 20111222
  Serious: Yes (Hospitalization, Other)
  Sender: FDA-Public Use
  Company Number: US-BAYER-2011-005920

PATIENT
  Age: 37 Year
  Sex: Female
  Weight: 97.506 kg

DRUGS (9)
  1. AMLODIPINE BESYLATE [Concomitant]
     Indication: HYPERTENSION
     Dosage: UNK
     Dates: start: 20000101
  2. NITROFURANTOIN [Concomitant]
     Dosage: UNK UNK, QID
  3. NEXIUM [Concomitant]
     Dosage: 40 MG, QD
     Dates: start: 20090521
  4. FOLIC ACID [Concomitant]
     Dosage: UNK UNK, QD
  5. PRENATAL VITAMINS [Concomitant]
  6. RANITIDINE [Concomitant]
     Dosage: 150 MG, UNK
     Dates: start: 20090806
  7. YAZ [Suspect]
     Indication: CONTRACEPTION
     Dosage: UNK
     Dates: start: 20061201, end: 20080901
  8. IBUPROFEN [Concomitant]
  9. NORVASC [Concomitant]
     Dosage: 10 MG, QD

REACTIONS (5)
  - PANCREATITIS [None]
  - CHOLELITHIASIS [None]
  - PAIN [None]
  - CHOLECYSTITIS CHRONIC [None]
  - INJURY [None]
